FAERS Safety Report 5398748-8 (Version None)
Quarter: 2007Q3

REPORT INFORMATION
  Report Type: 
  Country: None (occurrence: None)
  Receive Date: 20070726
  Receipt Date: 20070326
  Transmission Date: 20080115
  Serious: No
  Sender: FDA-Public Use
  Company Number: US-AMGEN-KDL216599

PATIENT
  Sex: Male

DRUGS (2)
  1. EPOGEN [Suspect]
     Indication: ANAEMIA
     Dates: start: 20070322
  2. PROCRIT [Suspect]
     Indication: ANAEMIA

REACTIONS (2)
  - DIARRHOEA [None]
  - FATIGUE [None]
